FAERS Safety Report 16668444 (Version 1)
Quarter: 2019Q3

REPORT INFORMATION
  Report Type: Spontaneous
  Country: US (occurrence: US)
  Receive Date: 20190803
  Receipt Date: 20190803
  Transmission Date: 20191004
  Serious: Yes (Disabling)
  Sender: FDA-Public Use
  Company Number: None

PATIENT
  Age: 28 Year
  Sex: Female
  Weight: 60.75 kg

DRUGS (3)
  1. MULTIVITAMINS [Concomitant]
     Active Substance: VITAMINS
  2. ELOCON [Suspect]
     Active Substance: MOMETASONE FUROATE
     Indication: ECZEMA
     Route: 061
  3. CLOBETOSOL OINTMENT [Suspect]
     Active Substance: CLOBETASOL

REACTIONS (16)
  - Product use complaint [None]
  - Scab [None]
  - Impaired healing [None]
  - Depression [None]
  - Skin burning sensation [None]
  - Skin weeping [None]
  - Erythema [None]
  - Skin injury [None]
  - Steroid withdrawal syndrome [None]
  - Alopecia [None]
  - Anxiety [None]
  - Mineral deficiency [None]
  - Hypovitaminosis [None]
  - Pruritus [None]
  - Adrenal insufficiency [None]
  - Cortisol decreased [None]

NARRATIVE: CASE EVENT DATE: 20160716
